FAERS Safety Report 9502529 (Version 1)
Quarter: 2013Q3

REPORT INFORMATION
  Report Type: Spontaneous
  Country: US (occurrence: US)
  Receive Date: 20130906
  Receipt Date: 20130906
  Transmission Date: 20140515
  Serious: Yes (Death)
  Sender: FDA-Public Use
  Company Number: US-RANBAXY-2013US-72957

PATIENT
  Age: 1 Month
  Sex: Male

DRUGS (2)
  1. PSEUDOEPHEDRINE [Suspect]
     Indication: PRODUCT USED FOR UNKNOWN INDICATION
     Dosage: UNK
     Route: 048
  2. ACETAMINOPHEN, DEXTROMETHORPHAN HBR AND PHENYLEPHRINE HCL [Suspect]
     Indication: WHEEZING
     Dosage: UNK
     Route: 065

REACTIONS (3)
  - Toxicity to various agents [Fatal]
  - Sudden infant death syndrome [Fatal]
  - Hypoxic-ischaemic encephalopathy [Fatal]
